FAERS Safety Report 9254246 (Version 1)
Quarter: 2013Q2

REPORT INFORMATION
  Report Type: Spontaneous
  Country: US (occurrence: None)
  Receive Date: 20130416
  Receipt Date: 20130416
  Transmission Date: 20140414
  Serious: Yes (Other)
  Sender: FDA-Public Use
  Company Number: A13-039

PATIENT
  Age: 8 Year
  Sex: Male
  Weight: 26.3 kg

DRUGS (5)
  1. RAGWEED MIXTURE [Suspect]
     Dosage: 1:10, 0.05CC; ONCE, 057
     Dates: start: 20130225
  2. MOLD MIX + MITES; ALK-ABELLO INC. [Suspect]
     Dosage: 1:10, 0.05CC; ONCE, 057
     Dates: start: 20130225
  3. FLOVENT [Concomitant]
  4. PROAIR [Concomitant]
  5. RITALIN [Concomitant]

REACTIONS (3)
  - Pruritus generalised [None]
  - Urticaria [None]
  - Wheezing [None]
